FAERS Safety Report 5042967-7 (Version None)
Quarter: 2006Q2

REPORT INFORMATION
  Report Type: 
  Country: None (occurrence: None)
  Receive Date: 20060628
  Receipt Date: 20060614
  Transmission Date: 20061013
  Serious: Yes (Death, Hospitalization, Other)
  Sender: FDA-Public Use
  Company Number: A-US2005-11002

PATIENT
  Age: 73 Year
  Sex: Female
  Weight: 45.4 kg

DRUGS (15)
  1. TRACLEER [Suspect]
     Indication: PULMONARY HYPERTENSION
     Dosage: SEE IMAGE
     Route: 048
     Dates: start: 20040709, end: 20040724
  2. TRACLEER [Suspect]
     Indication: PULMONARY HYPERTENSION
     Dosage: SEE IMAGE
     Route: 048
     Dates: start: 20041030, end: 20041212
  3. TRACLEER [Suspect]
     Indication: PULMONARY HYPERTENSION
     Dosage: SEE IMAGE
     Route: 048
     Dates: start: 20041213
  4. SILDENAFIL CITRATE [Concomitant]
  5. VICODIN [Concomitant]
  6. FOSAMAX [Concomitant]
  7. ZOLOFT [Concomitant]
  8. OXYGEN (OXYGEN) [Concomitant]
  9. AZITHROMYCIN [Concomitant]
  10. USDODIOL (URSODEOXYCHOLIC ACID) [Concomitant]
  11. IMODIUM [Concomitant]
  12. FUROSEMIDE [Concomitant]
  13. POTASSIUM CHLORIDE [Concomitant]
  14. IMURAN [Concomitant]
  15. FERROUS SULFATE TAB [Concomitant]

REACTIONS (20)
  - ANAEMIA [None]
  - ANTINUCLEAR ANTIBODY POSITIVE [None]
  - AUTOIMMUNE HEPATITIS [None]
  - BILIARY CIRRHOSIS PRIMARY [None]
  - CHOLANGITIS SCLEROSING [None]
  - CHOLELITHIASIS [None]
  - FREQUENT BOWEL MOVEMENTS [None]
  - GASTRIC VARICES HAEMORRHAGE [None]
  - HAEMORRHOIDS [None]
  - HEPATIC FIBROSIS [None]
  - INCONTINENCE [None]
  - OEDEMA PERIPHERAL [None]
  - OESOPHAGEAL VARICES HAEMORRHAGE [None]
  - PHARYNGOESOPHAGEAL DIVERTICULUM [None]
  - PLATELET COUNT DECREASED [None]
  - REFUSAL OF TREATMENT BY PATIENT [None]
  - RESPIRATORY TRACT INFECTION [None]
  - UPPER GASTROINTESTINAL HAEMORRHAGE [None]
  - WEIGHT INCREASED [None]
  - WHITE BLOOD CELL COUNT DECREASED [None]
